FAERS Safety Report 9475602 (Version 1)
Quarter: 2013Q3

REPORT INFORMATION
  Report Type: Spontaneous
  Country: BR (occurrence: BR)
  Receive Date: 20130826
  Receipt Date: 20130826
  Transmission Date: 20140515
  Serious: Yes (Other)
  Sender: FDA-Public Use
  Company Number: PHHY2013BR090446

PATIENT
  Age: 66 Year
  Sex: Male

DRUGS (4)
  1. TEGRETOL [Suspect]
     Indication: EPILEPSY
     Dosage: HALF TABLET IN THE MORNING PLUS HALF TABLET AT NIGHT/ A DAY
     Route: 048
  2. FLUOXETINE [Suspect]
     Dosage: UNK UKN, UNK
  3. RIVOTRIL [Suspect]
     Dosage: UNK UKN, UNK
  4. LAMITOR [Suspect]
     Dosage: UNK UKN, UNK

REACTIONS (10)
  - Visual impairment [Not Recovered/Not Resolved]
  - Visual acuity reduced [Not Recovered/Not Resolved]
  - Dysstasia [Not Recovered/Not Resolved]
  - Abnormal behaviour [Not Recovered/Not Resolved]
  - Coordination abnormal [Not Recovered/Not Resolved]
  - Memory impairment [Not Recovered/Not Resolved]
  - Muscular weakness [Not Recovered/Not Resolved]
  - Dizziness [Not Recovered/Not Resolved]
  - Somnolence [Not Recovered/Not Resolved]
  - Wrong technique in drug usage process [Unknown]
